APPROVED DRUG PRODUCT: SERTRALINE HYDROCHLORIDE
Active Ingredient: SERTRALINE HYDROCHLORIDE
Strength: EQ 20MG BASE/ML
Dosage Form/Route: CONCENTRATE;ORAL
Application: A078053 | Product #001
Applicant: RANBAXY LABORATORIES LTD
Approved: Feb 5, 2007 | RLD: No | RS: No | Type: DISCN